FAERS Safety Report 14019682 (Version 3)
Quarter: 2017Q4

REPORT INFORMATION
  Report Type: Report from Study
  Country: US (occurrence: US)
  Receive Date: 20170928
  Receipt Date: 20171017
  Transmission Date: 20180321
  Serious: Yes (Other)
  Sender: FDA-Public Use
  Company Number: US-PFIZER INC-2017336455

PATIENT
  Age: 60 Year
  Sex: Female

DRUGS (1)
  1. IBRANCE [Suspect]
     Active Substance: PALBOCICLIB
     Indication: BREAST CANCER METASTATIC
     Dosage: 125 MG, 1X/DAY
     Route: 048
     Dates: start: 20170731, end: 20170918

REACTIONS (5)
  - Weight decreased [Unknown]
  - Diarrhoea [Recovering/Resolving]
  - Neoplasm progression [Unknown]
  - Back pain [Unknown]
  - Fatigue [Unknown]

NARRATIVE: CASE EVENT DATE: 2017
